FAERS Safety Report 9719236 (Version 3)
Quarter: 2014Q1

REPORT INFORMATION
  Report Type: Report from Study
  Country: US (occurrence: US)
  Receive Date: 20131127
  Receipt Date: 20140310
  Transmission Date: 20141002
  Serious: Yes (Other)
  Sender: FDA-Public Use
  Company Number: PHEH2013US024617

PATIENT
  Age: 28 Year
  Sex: Male
  Weight: 78 kg

DRUGS (14)
  1. TOBI [Suspect]
     Indication: CYSTIC FIBROSIS
     Dosage: 300 MG, BID
     Route: 055
  2. PULMOZYME [Concomitant]
     Dosage: UNK UKN, UNK
     Route: 055
  3. ALBUTEROL [Concomitant]
     Indication: CYSTIC FIBROSIS
     Dosage: UNK UKN, UNK
     Route: 055
  4. CREON [Concomitant]
     Dosage: UNK UKN, UNK
     Route: 048
  5. REGLAN [Concomitant]
     Dosage: UNK UKN, UNK
     Route: 048
  6. PREVACID [Concomitant]
     Dosage: UNK UKN, UNK
  7. ZITHROMAX [Concomitant]
     Indication: PANCREATIC INSUFFICIENCY
     Dosage: UNK UKN, UNK
     Route: 048
  8. COLACE [Concomitant]
     Dosage: UNK UKN, UNK
     Route: 048
  9. FLONASE [Concomitant]
     Dosage: UNK UKN, UNK
  10. HYDROCORTISONE CREAM [Concomitant]
     Dosage: UNK UKN, UNK
  11. LANSOPRAZOLE [Concomitant]
     Dosage: UNK UKN, UNK
     Route: 048
  12. AQUADEKS [Concomitant]
     Dosage: UNK UKN, UNK
     Route: 048
  13. MIRALAX [Concomitant]
     Dosage: UNK UKN, UNK
     Route: 048
  14. ULTRAM [Concomitant]
     Dosage: UNK UKN, UNK
     Route: 048

REACTIONS (4)
  - Nasopharyngitis [Unknown]
  - Oropharyngeal pain [Unknown]
  - Upper respiratory tract infection [Recovering/Resolving]
  - Sputum increased [Unknown]
